FAERS Safety Report 6994270-3 (Version None)
Quarter: 2010Q3

REPORT INFORMATION
  Report Type: 
  Country: None (occurrence: None)
  Receive Date: 20100917
  Receipt Date: 20100303
  Transmission Date: 20110219
  Serious: Yes (Other)
  Sender: FDA-Public Use
  Company Number: US-ASTRAZENECA-2009SE21892

PATIENT
  Age: 565 Month
  Sex: Male

DRUGS (3)
  1. SEROQUEL [Suspect]
     Dosage: 100-200 MG
     Route: 048
     Dates: start: 20020408
  2. FLUOXETINE HCL [Concomitant]
     Dosage: 20 MG THREE CAPSULE EVERY MORNING
     Route: 048
     Dates: start: 20070710
  3. HYDROCHLOROTHIAZIDE [Concomitant]
     Indication: BLOOD PRESSURE
     Dosage: 25 MG ONE TABLET EVERY MORNING
     Route: 048
     Dates: start: 20070605

REACTIONS (2)
  - DIABETIC KETOACIDOSIS [None]
  - TYPE 2 DIABETES MELLITUS [None]
